FAERS Safety Report 8812726 (Version 3)
Quarter: 2012Q4

REPORT INFORMATION
  Report Type: 
  Country: US (occurrence: US)
  Receive Date: 20120927
  Receipt Date: 20121203
  Transmission Date: 20130627
  Serious: Yes (Hospitalization)
  Sender: FDA-Public Use
  Company Number: US-GILEAD-2012-0061803

PATIENT
  Age: 61 Year
  Sex: Male

DRUGS (5)
  1. LETAIRIS [Suspect]
     Indication: PULMONARY HYPERTENSION
     Dosage: 10 mg, QD
     Route: 048
     Dates: start: 20120529
  2. LETAIRIS [Suspect]
     Indication: MITRAL VALVE INCOMPETENCE
  3. LETAIRIS [Suspect]
     Indication: PULMONARY EMBOLISM
  4. LETAIRIS [Suspect]
     Indication: SLEEP APNOEA SYNDROME
  5. WARFARIN [Concomitant]

REACTIONS (7)
  - Compartment syndrome [Unknown]
  - Pain in extremity [Unknown]
  - Pain in extremity [Recovered/Resolved]
  - Swelling [Unknown]
  - Limb operation [Unknown]
  - Life support [Unknown]
  - Dyspnoea [Not Recovered/Not Resolved]
